FAERS Safety Report 5033462-X (Version None)
Quarter: 2006Q2

REPORT INFORMATION
  Report Type: 
  Country: None (occurrence: None)
  Receive Date: 20060623
  Receipt Date: 20060615
  Transmission Date: 20061013
  Serious: Yes (Other)
  Sender: FDA-Public Use
  Company Number: FR-AVENTIS-200612174FR

PATIENT

DRUGS (4)
  1. LOVENOX [Suspect]
     Route: 058
     Dates: start: 20060501
  2. NISISCO [Concomitant]
     Route: 048
  3. LIPANTHYL [Concomitant]
     Route: 048
  4. IXPRIM [Concomitant]
     Route: 048
     Dates: start: 20060501, end: 20060501

REACTIONS (3)
  - HAEMOGLOBIN DECREASED [None]
  - RECTAL HAEMORRHAGE [None]
  - THROMBOCYTHAEMIA [None]
